FAERS Safety Report 9226560 (Version 1)
Quarter: 2013Q2

REPORT INFORMATION
  Report Type: Spontaneous
  Country: US (occurrence: US)
  Receive Date: 20130412
  Receipt Date: 20130412
  Transmission Date: 20140414
  Serious: Yes (Hospitalization)
  Sender: FDA-Public Use
  Company Number: US-BIOGENIDEC-2013BI030336

PATIENT
  Age: 39 Year
  Sex: Female

DRUGS (1)
  1. AVONEX [Suspect]
     Indication: MULTIPLE SCLEROSIS
     Route: 030
     Dates: start: 20120314

REACTIONS (5)
  - Multiple sclerosis relapse [Recovered/Resolved]
  - Injection site ulcer [Unknown]
  - Tremor [Unknown]
  - Feeling cold [Unknown]
  - Malaise [Recovered/Resolved]
